FAERS Safety Report 19703534 (Version 1)
Quarter: 2021Q3

REPORT INFORMATION
  Report Type: Spontaneous
  Country: AT (occurrence: AT)
  Receive Date: 20210816
  Receipt Date: 20210816
  Transmission Date: 20211014
  Serious: Yes (Hospitalization)
  Sender: FDA-Public Use
  Company Number: AT-TEVA-2021-AT-1942060

PATIENT
  Age: 71 Year

DRUGS (1)
  1. FILGRASTIM [Suspect]
     Active Substance: FILGRASTIM
     Indication: APLASTIC ANAEMIA
     Dosage: 4 UG/KG DAILY;
     Route: 065

REACTIONS (2)
  - Hypermetabolism [Unknown]
  - Bone marrow disorder [Unknown]
